FAERS Safety Report 12289862 (Version 3)
Quarter: 2016Q2

REPORT INFORMATION
  Report Type: Report from Study
  Country: JP (occurrence: JP)
  Receive Date: 20160421
  Receipt Date: 20160429
  Transmission Date: 20160815
  Serious: Yes (Other)
  Sender: FDA-Public Use
  Company Number: JP-PFIZER INC-2016221414

PATIENT
  Age: 74 Year
  Sex: Male

DRUGS (1)
  1. FOSPHENYTOIN SODIUM. [Suspect]
     Active Substance: FOSPHENYTOIN SODIUM
     Indication: STATUS EPILEPTICUS
     Dosage: 1125 MG, DAILY
     Route: 042
     Dates: start: 20140415, end: 20140415

REACTIONS (2)
  - Respiratory symptom [Unknown]
  - Respiratory depression [Unknown]
